FAERS Safety Report 4987743-6 (Version None)
Quarter: 2006Q2

REPORT INFORMATION
  Report Type: 
  Country: None (occurrence: None)
  Receive Date: 20060428
  Receipt Date: 20060428
  Transmission Date: 20061013
  Serious: No
  Sender: FDA-Public Use
  Company Number: None

PATIENT
  Age: 82 Year
  Sex: Male

DRUGS (1)
  1. ZOMETA [Suspect]
     Indication: PROSTATE CANCER
     Dosage: 4 MG MONTHLY IV
     Route: 042
     Dates: start: 20040810, end: 20050707

REACTIONS (2)
  - JAW DISORDER [None]
  - OSTEONECROSIS [None]
